FAERS Safety Report 16235686 (Version 1)
Quarter: 2019Q2

REPORT INFORMATION
  Report Type: Spontaneous
  Country: US (occurrence: US)
  Receive Date: 20190424
  Receipt Date: 20190424
  Transmission Date: 20190711
  Serious: No
  Sender: FDA-Public Use
  Company Number: US-UNITED THERAPEUTICS-UNT-2019-006585

PATIENT
  Age: 75 Year
  Sex: Female
  Weight: 61.68 kg

DRUGS (1)
  1. TYVASO [Suspect]
     Active Substance: TREPROSTINIL
     Indication: PULMONARY ARTERIAL HYPERTENSION
     Dosage: 18-54 ?G, QID
     Dates: start: 20190322, end: 20190417

REACTIONS (4)
  - Headache [Not Recovered/Not Resolved]
  - Coordination abnormal [Unknown]
  - Fall [Recovered/Resolved with Sequelae]
  - Ligament sprain [Not Recovered/Not Resolved]

NARRATIVE: CASE EVENT DATE: 20190405
